FAERS Safety Report 18860760 (Version 2)
Quarter: 2021Q1

REPORT INFORMATION
  Report Type: Report from Study
  Country: IT (occurrence: IT)
  Receive Date: 20210208
  Receipt Date: 20210211
  Transmission Date: 20210420
  Serious: Yes (Hospitalization)
  Sender: FDA-Public Use
  Company Number: IT-BIOVITRUM-2021IT0419

PATIENT
  Age: 16 Year
  Sex: Female
  Weight: 52 kg

DRUGS (17)
  1. EMAPALUMAB [Suspect]
     Active Substance: EMAPALUMAB
     Route: 041
     Dates: start: 20201228, end: 20201228
  2. CYCLOSPORINE. [Suspect]
     Active Substance: CYCLOSPORINE
     Indication: HAEMOPHAGOCYTIC LYMPHOHISTIOCYTOSIS
     Dates: start: 20201206
  3. OMEPRAZOLE. [Concomitant]
     Active Substance: OMEPRAZOLE
     Indication: GASTRITIS PROPHYLAXIS
     Dates: start: 20200106
  4. EMAPALUMAB [Suspect]
     Active Substance: EMAPALUMAB
     Route: 041
     Dates: start: 20201218, end: 20201218
  5. EMAPALUMAB [Suspect]
     Active Substance: EMAPALUMAB
     Route: 041
     Dates: start: 20201221, end: 20201221
  6. EMAPALUMAB [Suspect]
     Active Substance: EMAPALUMAB
     Route: 041
     Dates: start: 20201231, end: 20201231
  7. ANAKINRA [Suspect]
     Active Substance: ANAKINRA
     Indication: HAEMOPHAGOCYTIC LYMPHOHISTIOCYTOSIS
     Dates: start: 20201206
  8. CARVEDILOL. [Concomitant]
     Active Substance: CARVEDILOL
     Indication: HYPERTENSION
     Dates: start: 20201212
  9. ACYCLOVIR. [Concomitant]
     Active Substance: ACYCLOVIR
     Indication: PROPHYLAXIS
     Dates: start: 20201211
  10. EMAPALUMAB [Suspect]
     Active Substance: EMAPALUMAB
     Route: 041
     Dates: start: 20201224, end: 20201224
  11. METHYLPREDNISOLONE. [Suspect]
     Active Substance: METHYLPREDNISOLONE
     Indication: HAEMOPHAGOCYTIC LYMPHOHISTIOCYTOSIS
     Dates: start: 20201206, end: 20210108
  12. FLUCONAZOLE. [Concomitant]
     Active Substance: FLUCONAZOLE
     Indication: PROPHYLAXIS
     Dates: start: 20201211
  13. CHOLECALCIFEROL [Concomitant]
     Active Substance: CHOLECALCIFEROL
     Indication: SUPPLEMENTATION THERAPY
     Dates: start: 20180803
  14. EMAPALUMAB [Suspect]
     Active Substance: EMAPALUMAB
     Indication: HAEMOPHAGOCYTIC LYMPHOHISTIOCYTOSIS
     Route: 041
     Dates: start: 20201212, end: 20201212
  15. EMAPALUMAB [Suspect]
     Active Substance: EMAPALUMAB
     Indication: STILL^S DISEASE
     Route: 041
     Dates: start: 20201215, end: 20201215
  16. EMAPALUMAB [Suspect]
     Active Substance: EMAPALUMAB
     Route: 041
     Dates: start: 20210104, end: 20210104
  17. ANAKINRA [Suspect]
     Active Substance: ANAKINRA
     Indication: STILL^S DISEASE

REACTIONS (2)
  - Salmonella test positive [Unknown]
  - Pneumonia legionella [Recovering/Resolving]

NARRATIVE: CASE EVENT DATE: 20210108
